FAERS Safety Report 18133784 (Version 1)
Quarter: 2020Q3

REPORT INFORMATION
  Report Type: Spontaneous
  Country: US (occurrence: US)
  Receive Date: 20200811
  Receipt Date: 20200811
  Transmission Date: 20201103
  Serious: Yes (Death, Other)
  Sender: FDA-Public Use
  Company Number: US-GLAXOSMITHKLINE-US2020156029

PATIENT
  Age: 71 Year

DRUGS (4)
  1. ZANTAC [Suspect]
     Active Substance: RANITIDINE HYDROCHLORIDE
  2. RANITIDINE HCI [Suspect]
     Active Substance: RANITIDINE HYDROCHLORIDE
  3. ZANTAC [Suspect]
     Active Substance: RANITIDINE HYDROCHLORIDE
  4. RANITIDINE. [Suspect]
     Active Substance: RANITIDINE

REACTIONS (13)
  - Oesophageal carcinoma [Unknown]
  - Renal cancer [Unknown]
  - Brain injury [Unknown]
  - Lung neoplasm malignant [Unknown]
  - Gastric cancer [Unknown]
  - Testis cancer [Unknown]
  - Pancreatic carcinoma [Unknown]
  - Breast cancer [Unknown]
  - Neoplasm malignant [Fatal]
  - Gastrointestinal carcinoma [Unknown]
  - Colorectal cancer [Unknown]
  - Bladder cancer [Unknown]
  - Hepatic cancer [Unknown]
